FAERS Safety Report 4332765-1 (Version None)
Quarter: 2004Q1

REPORT INFORMATION
  Report Type: 
  Country: None (occurrence: None)
  Receive Date: 20040330
  Receipt Date: 20040315
  Transmission Date: 20041129
  Serious: Yes (Hospitalization)
  Sender: FDA-Public Use
  Company Number: A06200400085

PATIENT
  Age: 82 Year
  Sex: Male

DRUGS (8)
  1. PLAVIX [Suspect]
     Indication: ANGIOPLASTY
     Dosage: 75 MG OD, ORAL
     Route: 048
     Dates: start: 20040111, end: 20040221
  2. PLAVIX [Suspect]
     Indication: MYOCARDIAL INFARCTION
     Dosage: 75 MG OD, ORAL
     Route: 048
     Dates: start: 20040111, end: 20040221
  3. CARDIRENE (ACETYLSALICYLATE LYSINE) [Concomitant]
  4. LOPRESSOR [Concomitant]
  5. LASIX [Concomitant]
  6. KANRENOL (POTASSIUM CANRENOATE) [Concomitant]
  7. RAMIPRIL [Concomitant]
  8. KCL TAB [Concomitant]

REACTIONS (3)
  - AGRANULOCYTOSIS [None]
  - FALL [None]
  - FEBRILE NEUTROPENIA [None]
